FAERS Safety Report 16155686 (Version 1)
Quarter: 2019Q2

REPORT INFORMATION
  Report Type: Spontaneous
  Country: US (occurrence: US)
  Receive Date: 20190404
  Receipt Date: 20190404
  Transmission Date: 20190711
  Serious: No
  Sender: FDA-Public Use
  Company Number: US-CIPLA LTD.-2018US22598

PATIENT

DRUGS (1)
  1. SERTRALINE [Suspect]
     Active Substance: SERTRALINE HYDROCHLORIDE
     Indication: ANXIETY
     Dosage: HALF A TABLET OF 50 MG, UNK
     Route: 048
     Dates: start: 20181102

REACTIONS (5)
  - Gastrointestinal tract irritation [Unknown]
  - Product administration error [Unknown]
  - Diarrhoea [Unknown]
  - Pruritus [Unknown]
  - Gastrointestinal pain [Unknown]

NARRATIVE: CASE EVENT DATE: 20181103
